FAERS Safety Report 9904188 (Version 1)
Quarter: 2014Q1

REPORT INFORMATION
  Report Type: Not Available
  Country: US (occurrence: US)
  Receive Date: 20140218
  Receipt Date: 20140218
  Transmission Date: 20141002
  Serious: Yes (Other)
  Sender: FDA-Public Use
  Company Number: US-LUPIN PHARMACEUTICALS INC.-E2B_00001701

PATIENT
  Age: 47 Year
  Sex: Female
  Weight: 61.29 kg

DRUGS (2)
  1. DULOXETINE DELAYED-RELEASE 20 MG CAPSULES USP [Suspect]
     Indication: DEPRESSION
     Dates: start: 20140109, end: 20140111
  2. ESTROGEN [Concomitant]
     Indication: PRODUCT USED FOR UNKNOWN INDICATION
     Route: 065

REACTIONS (12)
  - Epistaxis [Recovered/Resolved]
  - Gastrointestinal oedema [Recovered/Resolved]
  - Adverse drug reaction [Unknown]
  - Feeling abnormal [Recovered/Resolved]
  - Diarrhoea [Not Recovered/Not Resolved]
  - Nausea [Recovered/Resolved]
  - Abdominal pain upper [Recovered/Resolved]
  - Palpitations [Recovered/Resolved]
  - Anxiety [Not Recovered/Not Resolved]
  - Decreased appetite [Not Recovered/Not Resolved]
  - Weight decreased [Not Recovered/Not Resolved]
  - Product substitution issue [Recovering/Resolving]
